FAERS Safety Report 14698132 (Version 1)
Quarter: 2018Q1

REPORT INFORMATION
  Report Type: Spontaneous
  Country: FR (occurrence: FR)
  Receive Date: 20180330
  Receipt Date: 20180330
  Transmission Date: 20180509
  Serious: Yes (Other)
  Sender: FDA-Public Use
  Company Number: FR-009507513-1803FRA010897

PATIENT
  Sex: Female

DRUGS (2)
  1. PARLODEL [Suspect]
     Active Substance: BROMOCRIPTINE MESYLATE
  2. SINEMET [Suspect]
     Active Substance: CARBIDOPA\LEVODOPA
     Indication: PARKINSON^S DISEASE
     Dosage: UNK
     Route: 048
     Dates: start: 2002

REACTIONS (3)
  - Cerebrovascular accident [Unknown]
  - Drooling [Unknown]
  - Hemiplegia [Unknown]

NARRATIVE: CASE EVENT DATE: 2008
